FAERS Safety Report 20404216 (Version 2)
Quarter: 2022Q1

REPORT INFORMATION
  Report Type: Spontaneous
  Country: FI (occurrence: FI)
  Receive Date: 20220131
  Receipt Date: 20220206
  Transmission Date: 20220423
  Serious: Yes (Hospitalization)
  Sender: FDA-Public Use
  Company Number: None

PATIENT
  Age: 23 Year
  Sex: Male

DRUGS (4)
  1. RISPERDAL [Interacting]
     Active Substance: RISPERIDONE
     Indication: Anxiety
     Dosage: 1,MG,DAILY
     Route: 048
     Dates: start: 20211122, end: 20211122
  2. RISPERDAL [Interacting]
     Active Substance: RISPERIDONE
     Indication: Psychotic symptom
  3. RISPERIDONE [Suspect]
     Active Substance: RISPERIDONE
     Indication: Anxiety
     Dosage: 1,MG,DAILY
     Route: 048
     Dates: start: 20211122, end: 20211122
  4. ARIPIPRAZOLE [Interacting]
     Active Substance: ARIPIPRAZOLE
     Indication: Psychotic symptom
     Route: 048
     Dates: start: 20211104, end: 20211122

REACTIONS (6)
  - Panic attack [Not Recovered/Not Resolved]
  - Feeling abnormal [Not Recovered/Not Resolved]
  - Drug interaction [Not Recovered/Not Resolved]
  - Pulmonary embolism [Not Recovered/Not Resolved]
  - Alanine aminotransferase increased [Not Recovered/Not Resolved]
  - SARS-CoV-2 test negative [Not Recovered/Not Resolved]

NARRATIVE: CASE EVENT DATE: 20211121
